FAERS Safety Report 5288336-6 (Version None)
Quarter: 2007Q1

REPORT INFORMATION
  Report Type: 
  Country: None (occurrence: None)
  Receive Date: 20070330
  Receipt Date: 20070319
  Transmission Date: 20070707
  Serious: Yes (Hospitalization)
  Sender: FDA-Public Use
  Company Number: FABR-10828

PATIENT
  Age: 32 Year
  Sex: Male
  Weight: 51 kg

DRUGS (6)
  1. FABRAZYME [Suspect]
     Indication: FABRY'S DISEASE
     Dosage: 50 MG Q2WKS IV
     Route: 042
     Dates: start: 20040708
  2. CARBAMAZEPINE [Concomitant]
  3. AMLODIPINE BESYLATE [Concomitant]
  4. MYCOPHENOLATE MOFETIL [Concomitant]
  5. TACROLIMUS HYDRATE [Concomitant]
  6. ASPIRIN [Concomitant]

REACTIONS (3)
  - HAEMODIALYSIS [None]
  - RENAL TRANSPLANT [None]
  - URINE OUTPUT INCREASED [None]
